FAERS Safety Report 5654920-0 (Version None)
Quarter: 2008Q1

REPORT INFORMATION
  Report Type: 
  Country: None (occurrence: None)
  Receive Date: 20080307
  Receipt Date: 20070907
  Transmission Date: 20080703
  Serious: No
  Sender: FDA-Public Use
  Company Number: A0679795A

PATIENT
  Sex: Male

DRUGS (2)
  1. REQUIP [Suspect]
     Indication: RESTLESS LEGS SYNDROME
     Route: 048
     Dates: start: 20070101
  2. GLUCOSAMINE + CHONDROITIN [Suspect]
     Dosage: 750MG UNKNOWN
     Route: 048
     Dates: start: 20070101

REACTIONS (4)
  - ABNORMAL DREAMS [None]
  - DRUG INEFFECTIVE [None]
  - DRUG INTERACTION [None]
  - RESTLESS LEGS SYNDROME [None]
